FAERS Safety Report 8907866 (Version 1)
Quarter: 2012Q4

REPORT INFORMATION
  Report Type: 
  Country: US (occurrence: US)
  Receive Date: 20121113
  Receipt Date: 20121113
  Transmission Date: 20130627
  Serious: No
  Sender: FDA-Public Use
  Company Number: US-AMGEN-USASP2012039485

PATIENT
  Age: 53 Year
  Sex: Female

DRUGS (15)
  1. ENBREL [Suspect]
     Indication: PSORIATIC ARTHROPATHY
     Dosage: 50 mg, 2 times/wk
     Route: 058
  2. KLONOPIN [Concomitant]
     Dosage: 1 mg, UNK
     Route: 048
  3. FLEXERIL                           /00428402/ [Concomitant]
     Dosage: 10 mg, UNK
     Route: 048
  4. VIVELLE DOT [Concomitant]
     Dosage: 0.075 mg, UNK
  5. LISINOPRIL/HCTZ [Concomitant]
     Dosage: 20-12.5
     Route: 048
  6. MORPHINE SULFATE [Concomitant]
     Dosage: 30 mg, UNK
     Route: 048
  7. GLUCOFLEX GLUCOSAMINE AND CHONDROITIN [Concomitant]
     Route: 048
  8. ADDERALL [Concomitant]
     Dosage: 5 mg, UNK
     Route: 048
  9. TEA, GREEN [Concomitant]
     Dosage: UNK, TAB SLIM PO
     Route: 048
  10. NORCO [Concomitant]
     Dosage: 10-325 mg, UNK
     Route: 048
  11. CALCIUM [Concomitant]
     Dosage: 500 UNK, UNK
     Route: 048
  12. MULTIVITAMIN                       /00097801/ [Concomitant]
     Dosage: UNK
     Route: 048
  13. HYALURONIC ACID [Concomitant]
     Dosage: UNK
     Route: 048
  14. OMEGA 3                            /01334101/ [Concomitant]
     Dosage: 1000 mg, UNK
     Route: 048
  15. VITAMIN D3 [Concomitant]
     Route: 048

REACTIONS (1)
  - Contusion [Unknown]
